FAERS Safety Report 5127879-2 (Version None)
Quarter: 2006Q4

REPORT INFORMATION
  Report Type: 
  Country: None (occurrence: None)
  Receive Date: 20061011
  Receipt Date: 20060921
  Transmission Date: 20070319
  Serious: Yes (Death)
  Sender: FDA-Public Use
  Company Number: 2006RR-03844

PATIENT
  Age: 68 Year
  Sex: Male

DRUGS (3)
  1. CLARITHROMYCIN [Suspect]
     Indication: PNEUMONIA
     Dosage: 500 MG, BID, ORAL
     Route: 048
  2. COLCHICUM JTL LIQ [Suspect]
     Indication: GOUT
     Dosage: SEE  IMAGE
  3. PIPERACILLIN-TAZOBACTUM [Concomitant]

REACTIONS (10)
  - BONE MARROW FAILURE [None]
  - CHILLS [None]
  - DIARRHOEA [None]
  - DRUG INTERACTION [None]
  - DRUG TOXICITY [None]
  - HEPATIC NECROSIS [None]
  - HYPOTENSION [None]
  - ILEUS PARALYTIC [None]
  - PANCYTOPENIA [None]
  - PYREXIA [None]
